FAERS Safety Report 8260234-5 (Version None)
Quarter: 2012Q2

REPORT INFORMATION
  Report Type: 
  Country: None (occurrence: None)
  Receive Date: 20120404
  Receipt Date: 20120330
  Transmission Date: 20120825
  Serious: Yes (Other)
  Sender: FDA-Public Use
  Company Number: US-PFIZER INC-2012081678

PATIENT
  Sex: Female
  Weight: 68.027 kg

DRUGS (6)
  1. POTASSIUM CHLORIDE [Concomitant]
     Indication: MINERAL SUPPLEMENTATION
     Dosage: 20 MG, DAILY
  2. LISINOPRIL AND HYDROCHLOROTHIAZIDE [Concomitant]
     Indication: HYPERTENSION
     Dosage: 20/12.5 MG, 2X/DAY
  3. ACETYLSALICYLIC ACID [Concomitant]
     Dosage: UNK
  4. XALATAN [Suspect]
     Dosage: 1 GTT, DAILY (1DROP IN BOTH EYES)
     Route: 047
     Dates: end: 20111001
  5. NORVASC [Concomitant]
     Indication: HYPERTENSION
     Dosage: 2.5 MG, DAILY
  6. CALCIUM CARBONATE [Concomitant]
     Dosage: UNK, 2X/DAY

REACTIONS (1)
  - GLAUCOMA [None]
